FAERS Safety Report 23403861 (Version 2)
Quarter: 2024Q1

REPORT INFORMATION
  Report Type: Spontaneous
  Country: FI (occurrence: FI)
  Receive Date: 20240116
  Receipt Date: 20240125
  Transmission Date: 20240410
  Serious: Yes (Other)
  Sender: FDA-Public Use
  Company Number: FI-TAKEDA-2024TUS002942

PATIENT
  Age: 8 Year
  Sex: Male

DRUGS (1)
  1. LISDEXAMFETAMINE DIMESYLATE [Suspect]
     Active Substance: LISDEXAMFETAMINE DIMESYLATE
     Indication: Attention deficit hyperactivity disorder
     Dosage: UNK
     Route: 065
     Dates: start: 202303, end: 202303

REACTIONS (10)
  - Sensory processing disorder [Recovered/Resolved]
  - Tourette^s disorder [Unknown]
  - Sleep disorder [Not Recovered/Not Resolved]
  - Feeling abnormal [Not Recovered/Not Resolved]
  - Deafness unilateral [Recovered/Resolved]
  - Ear disorder [Recovered/Resolved]
  - Hallucinations, mixed [Not Recovered/Not Resolved]
  - Agitation [Not Recovered/Not Resolved]
  - Tic [Not Recovered/Not Resolved]
  - Depressed mood [Unknown]

NARRATIVE: CASE EVENT DATE: 20230301
